FAERS Safety Report 16731599 (Version 3)
Quarter: 2020Q1

REPORT INFORMATION
  Report Type: Spontaneous
  Country: US (occurrence: US)
  Receive Date: 20190822
  Receipt Date: 20200323
  Transmission Date: 20200409
  Serious: No
  Sender: FDA-Public Use
  Company Number: US-SA-2019SA230518

PATIENT
  Age: 68 Year
  Sex: Female

DRUGS (1)
  1. PRALUENT [Suspect]
     Active Substance: ALIROCUMAB
     Indication: BLOOD CHOLESTEROL INCREASED
     Dosage: UNK, QOW
     Dates: start: 2018

REACTIONS (3)
  - Product dose omission [Unknown]
  - Injury associated with device [Unknown]
  - Wrong technique in device usage process [Unknown]
